FAERS Safety Report 6003578-X (Version None)
Quarter: 2008Q4

REPORT INFORMATION
  Report Type: 
  Country: None (occurrence: None)
  Receive Date: 20081216
  Receipt Date: 20081210
  Transmission Date: 20090506
  Serious: Yes (Death)
  Sender: FDA-Public Use
  Company Number: UA-BAYER-200832550GPV

PATIENT
  Age: 77 Year
  Sex: Male

DRUGS (4)
  1. AVELOX [Suspect]
     Indication: PYELONEPHRITIS CHRONIC
     Dosage: TOTAL DAILY DOSE: 400 MG  UNIT DOSE: 400 MG
     Route: 065
  2. CEFTRIAXONE [Suspect]
     Indication: PYELONEPHRITIS CHRONIC
     Dosage: TOTAL DAILY DOSE: 2 G
     Route: 065
  3. LORICACIN [Suspect]
     Indication: PYELONEPHRITIS CHRONIC
     Dosage: TOTAL DAILY DOSE: 1 G
     Route: 065
  4. PENICILLIN [Suspect]
     Indication: PYELONEPHRITIS CHRONIC
     Dosage: TOTAL DAILY DOSE: 6000000 U
     Route: 065

REACTIONS (1)
  - UROSEPSIS [None]
